FAERS Safety Report 7198437-3 (Version None)
Quarter: 2010Q4

REPORT INFORMATION
  Report Type: 
  Country: None (occurrence: None)
  Receive Date: 20101227
  Receipt Date: 20101215
  Transmission Date: 20110411
  Serious: Yes (Other)
  Sender: FDA-Public Use
  Company Number: PHHY2010JP85840

PATIENT
  Age: 3 Year
  Sex: Female

DRUGS (3)
  1. CYCLOSPORINE [Suspect]
     Indication: COMBINED IMMUNODEFICIENCY
  2. DEXAMETHASONE [Concomitant]
     Indication: COMBINED IMMUNODEFICIENCY
  3. PREDONINE [Concomitant]
     Indication: COMBINED IMMUNODEFICIENCY

REACTIONS (2)
  - CYTOMEGALOVIRUS HEPATITIS [None]
  - INTERSTITIAL LUNG DISEASE [None]
